FAERS Safety Report 5875862-1 (Version None)
Quarter: 2008Q3

REPORT INFORMATION
  Report Type: 
  Country: None (occurrence: None)
  Receive Date: 20080909
  Receipt Date: 20080903
  Transmission Date: 20090109
  Serious: Yes (Hospitalization)
  Sender: FDA-Public Use
  Company Number: FR-PFIZER INC-2008073890

PATIENT
  Sex: Female

DRUGS (11)
  1. AMLOR [Suspect]
     Route: 048
     Dates: end: 20080103
  2. CORDARONE [Suspect]
     Route: 048
     Dates: end: 20080103
  3. STILNOX [Suspect]
     Dosage: TEXT:1 DF DAILY
     Route: 048
     Dates: end: 20080103
  4. MIANSERIN HYDROCHLORIDE [Suspect]
     Dosage: TEXT:1 DF DAILY
     Route: 048
     Dates: end: 20080103
  5. TRIMEBUTINE [Suspect]
     Dosage: TEXT:3 DF DAILY
     Route: 048
     Dates: end: 20080103
  6. FORLAX [Suspect]
     Dosage: TEXT:2 DF DAILY
     Route: 048
     Dates: end: 20080103
  7. DUPHALAC [Suspect]
     Dosage: TEXT:3 DF DAILY
     Route: 048
     Dates: end: 20080103
  8. NITRODERM [Concomitant]
  9. LANTUS [Concomitant]
  10. DIFFU K [Concomitant]
  11. LASIX [Concomitant]

REACTIONS (1)
  - PULMONARY FIBROSIS [None]
